FAERS Safety Report 8044752-0 (Version None)
Quarter: 2012Q1

REPORT INFORMATION
  Report Type: 
  Country: None (occurrence: None)
  Receive Date: 20120113
  Receipt Date: 20120109
  Transmission Date: 20120608
  Serious: Yes (Hospitalization, Other)
  Sender: FDA-Public Use
  Company Number: CH-ELI_LILLY_AND_COMPANY-CH201111006869

PATIENT
  Sex: Female

DRUGS (5)
  1. ACETAMINOPHEN [Concomitant]
     Dosage: 2 G, QD
  2. ALCOHOL [Concomitant]
  3. LYRICA [Concomitant]
  4. CYMBALTA [Suspect]
     Dosage: UNK UNK, UNKNOWN
  5. SEROQUEL [Concomitant]
     Dosage: UNK

REACTIONS (4)
  - OFF LABEL USE [None]
  - HEPATIC ENZYME INCREASED [None]
  - DRUG ABUSE [None]
  - ALCOHOL ABUSE [None]
